FAERS Safety Report 10500963 (Version 1)
Quarter: 2014Q4

REPORT INFORMATION
  Report Type: Spontaneous
  Country: FR (occurrence: FR)
  Receive Date: 20141007
  Receipt Date: 20141007
  Transmission Date: 20150528
  Serious: Yes (Other)
  Sender: FDA-Public Use
  Company Number: FR-CIPLA LTD.-2014FR01489

PATIENT

DRUGS (3)
  1. CETUXIMAB [Suspect]
     Active Substance: CETUXIMAB
     Indication: COLORECTAL CANCER METASTATIC
     Dosage: 250 MG/M2,ON DAY 1 AND DAY 8
     Route: 042
  2. PAZOPANIB [Suspect]
     Active Substance: PAZOPANIB
     Indication: COLORECTAL CANCER METASTATIC
     Dosage: 800 MG/DAY CONTINUOUS DAILY FROM DAY 2 OF CYCLE 1
     Route: 048
  3. IRINOTECAN [Suspect]
     Active Substance: IRINOTECAN
     Indication: COLORECTAL CANCER METASTATIC
     Dosage: 120 MG/M2, ON DAY 1
     Route: 042

REACTIONS (1)
  - Gastric haemorrhage [Unknown]
